FAERS Safety Report 14174244 (Version 6)
Quarter: 2021Q4

REPORT INFORMATION
  Report Type: Report from Study
  Country: JP (occurrence: JP)
  Receive Date: 20171109
  Receipt Date: 20211102
  Transmission Date: 20220303
  Serious: Yes (Hospitalization, Other)
  Sender: FDA-Public Use
  Company Number: JP-MYLANLABS-2017M1068472

PATIENT
  Age: 18 Year
  Sex: Female
  Weight: 30.5 kg

DRUGS (30)
  1. CYSTEAMINE [Suspect]
     Active Substance: CYSTEAMINE
     Indication: Cystinosis
     Dosage: 250 MG, QID
     Route: 048
     Dates: start: 20140806, end: 20160304
  2. CYSTEAMINE [Suspect]
     Active Substance: CYSTEAMINE
     Dosage: 300 MG, QID
     Route: 048
     Dates: start: 20160305
  3. PROGRAF [Concomitant]
     Active Substance: TACROLIMUS
     Indication: Product used for unknown indication
     Dosage: 2 MG, UNK
     Route: 048
     Dates: start: 20150301, end: 20160728
  4. PROGRAF [Concomitant]
     Active Substance: TACROLIMUS
     Dosage: 5 MG, UNK
     Route: 048
     Dates: start: 20160729, end: 20161221
  5. PROGRAF [Concomitant]
     Active Substance: TACROLIMUS
     Dosage: 4 MG, UNK
     Route: 048
     Dates: start: 20161222, end: 20170204
  6. PROGRAF [Concomitant]
     Active Substance: TACROLIMUS
     Dosage: 3 MG, UNK
     Route: 048
     Dates: start: 20170205, end: 20170223
  7. PROGRAF [Concomitant]
     Active Substance: TACROLIMUS
     Dosage: 2 MG, UNK
     Route: 048
     Dates: start: 20170224, end: 20170615
  8. PROGRAF [Concomitant]
     Active Substance: TACROLIMUS
     Dosage: 3 MG, UNK
     Route: 048
     Dates: start: 20170616
  9. PROGRAF [Concomitant]
     Active Substance: TACROLIMUS
     Dosage: 4 MILLIGRAM
     Route: 048
     Dates: start: 20180323, end: 20191114
  10. PROGRAF [Concomitant]
     Active Substance: TACROLIMUS
     Dosage: 3.4 MILLIGRAM
     Route: 048
     Dates: start: 20191115
  11. CINACALCET HYDROCHLORIDE [Concomitant]
     Active Substance: CINACALCET HYDROCHLORIDE
     Indication: Product used for unknown indication
     Dosage: 7.5 MG, UNK
     Route: 048
     Dates: start: 20110208, end: 20150301
  12. CINACALCET HYDROCHLORIDE [Concomitant]
     Active Substance: CINACALCET HYDROCHLORIDE
     Dosage: 2.5 MG, UNK
     Route: 048
     Dates: start: 20160317
  13. CINACALCET HYDROCHLORIDE [Concomitant]
     Active Substance: CINACALCET HYDROCHLORIDE
     Dosage: 12.5 MILLIGRAM
     Route: 048
     Dates: start: 20180323, end: 20190214
  14. CELLCEPT                           /01275102/ [Concomitant]
     Indication: Product used for unknown indication
     Dosage: 250 MG, UNK
     Route: 048
     Dates: start: 20150301, end: 20160728
  15. CELLCEPT                           /01275102/ [Concomitant]
     Dosage: 500 MG, UNK
     Route: 048
     Dates: start: 20160729, end: 20170204
  16. CELLCEPT                           /01275102/ [Concomitant]
     Dosage: 250 MG, UNK
     Route: 048
     Dates: start: 20170205, end: 20170615
  17. CELLCEPT                           /01275102/ [Concomitant]
     Dosage: 500 MG, UNK
     Route: 048
     Dates: start: 20170616
  18. LEVOTHYROXINE SODIUM [Concomitant]
     Active Substance: LEVOTHYROXINE SODIUM
     Indication: Product used for unknown indication
     Dosage: 25 ?G, UNK
     Route: 048
     Dates: start: 20100318
  19. LEVOTHYROXINE SODIUM [Concomitant]
     Active Substance: LEVOTHYROXINE SODIUM
     Dosage: 25 UNK
     Route: 048
     Dates: start: 20150417
  20. ALFACALCIDOL [Concomitant]
     Active Substance: ALFACALCIDOL
     Indication: Product used for unknown indication
     Dosage: 1.25 ?G, UNK
     Route: 048
     Dates: start: 20160513, end: 20170216
  21. ALFACALCIDOL [Concomitant]
     Active Substance: ALFACALCIDOL
     Dosage: 1 ?G, UNK
     Route: 048
     Dates: start: 20170217
  22. ENALAPRIL [Concomitant]
     Active Substance: ENALAPRIL
     Indication: Product used for unknown indication
     Dosage: 5 MG, UNK
     Route: 048
     Dates: start: 20161028, end: 20170204
  23. SODIUM BICARBONATE [Concomitant]
     Active Substance: SODIUM BICARBONATE
     Indication: Product used for unknown indication
     Dosage: 3000 MG, UNK
     Route: 048
     Dates: start: 20160513, end: 20170204
  24. CALCIUM CARBONATE [Concomitant]
     Active Substance: CALCIUM CARBONATE
     Indication: Product used for unknown indication
     Dosage: 750 MG, UNK
     Route: 048
     Dates: start: 20160603, end: 20170303
  25. DEXTROSE\SODIUM CHLORIDE\SODIUM LACTATE [Concomitant]
     Active Substance: DEXTROSE\SODIUM CHLORIDE\SODIUM LACTATE
     Indication: Product used for unknown indication
     Dosage: 500 ML, UNK
     Route: 042
     Dates: start: 20161116, end: 20161121
  26. ENALAPRIL MALEATE [Concomitant]
     Active Substance: ENALAPRIL MALEATE
     Indication: Product used for unknown indication
     Dosage: 2.5 MILLIGRAM
     Route: 048
     Dates: start: 20180713, end: 20181011
  27. MEDROL                             /00049601/ [Concomitant]
     Indication: Product used for unknown indication
     Dosage: 4 MILLIGRAM
     Route: 048
     Dates: start: 20170106
  28. SODIUM FERROUS CITRATE [Concomitant]
     Active Substance: SODIUM FERROUS CITRATE
     Indication: Product used for unknown indication
     Dosage: 100 MILLIGRAM
     Route: 048
     Dates: start: 20170512, end: 20210422
  29. SODIUM FERROUS CITRATE [Concomitant]
     Active Substance: SODIUM FERROUS CITRATE
     Dosage: 50 MILLIGRAM, QD
     Route: 048
     Dates: start: 20210423
  30. URALYT                             /01779901/ [Concomitant]
     Indication: Product used for unknown indication
     Dosage: 4 DOSAGE FORM
     Route: 048
     Dates: start: 20190215

REACTIONS (1)
  - Kidney transplant rejection [Recovered/Resolved]

NARRATIVE: CASE EVENT DATE: 20161116
